FAERS Safety Report 23731823 (Version 1)
Quarter: 2024Q2

REPORT INFORMATION
  Report Type: Spontaneous
  Country: US (occurrence: US)
  Receive Date: 20240411
  Receipt Date: 20240411
  Transmission Date: 20240716
  Serious: No
  Sender: FDA-Public Use
  Company Number: US-AMICUS THERAPEUTICS, INC.-AMI_2862

PATIENT
  Age: 21 Year
  Sex: Male

DRUGS (2)
  1. POMBILITI [Suspect]
     Active Substance: CIPAGLUCOSIDASE ALFA-ATGA
     Indication: Product used for unknown indication
     Dosage: 1365 MILLIGRAM, Q2WK
     Route: 042
     Dates: start: 2023
  2. OPFOLDA [Suspect]
     Active Substance: MIGLUSTAT
     Indication: Product used for unknown indication
     Dosage: 260 MILLIGRAM, Q2WK
     Route: 048
     Dates: start: 2023

REACTIONS (1)
  - Product dose omission issue [Recovered/Resolved]

NARRATIVE: CASE EVENT DATE: 20240112
